FAERS Safety Report 9371446 (Version 3)
Quarter: 2013Q4

REPORT INFORMATION
  Report Type: Report from Study
  Country: IT (occurrence: IT)
  Receive Date: 20130627
  Receipt Date: 20131105
  Transmission Date: 20140711
  Serious: Yes (Hospitalization)
  Sender: FDA-Public Use
  Company Number: IT-JNJFOC-20130611288

PATIENT
  Age: 11 Year
  Sex: Male
  Weight: 35.4 kg

DRUGS (2)
  1. REMICADE [Suspect]
     Indication: CROHN^S DISEASE
     Route: 042
     Dates: start: 20091124, end: 20110802
  2. HUMIRA [Concomitant]
     Route: 065
     Dates: start: 20110919, end: 201302

REACTIONS (1)
  - Intestinal stenosis [Recovered/Resolved with Sequelae]
